FAERS Safety Report 13142947 (Version 4)
Quarter: 2017Q1

REPORT INFORMATION
  Report Type: Spontaneous
  Country: GB (occurrence: GB)
  Receive Date: 20170123
  Receipt Date: 20170313
  Transmission Date: 20170428
  Serious: Yes (Other)
  Sender: FDA-Public Use
  Company Number: GB-BEH-2017077457

PATIENT
  Age: 44 Year
  Sex: Male
  Weight: 123 kg

DRUGS (10)
  1. IDELVION [Suspect]
     Active Substance: COAGULATION FACTOR IX RECOMBINANT HUMAN
     Dosage: 5000 IU, TOT
     Route: 042
     Dates: start: 20170109
  2. IDELVION [Suspect]
     Active Substance: COAGULATION FACTOR IX RECOMBINANT HUMAN
     Dosage: 5000 IU, TOT
     Route: 042
     Dates: start: 20170131, end: 20170131
  3. DICLOFENAC [Concomitant]
     Active Substance: DICLOFENAC
     Route: 065
  4. IDELVION [Suspect]
     Active Substance: COAGULATION FACTOR IX RECOMBINANT HUMAN
     Indication: PROPHYLAXIS
     Dosage: 500 IU, TOT
     Route: 042
     Dates: start: 20170104
  5. IDELVION [Suspect]
     Active Substance: COAGULATION FACTOR IX RECOMBINANT HUMAN
     Dosage: 1500 IU, BIW
     Route: 042
     Dates: start: 201702
  6. IDELVION [Suspect]
     Active Substance: COAGULATION FACTOR IX RECOMBINANT HUMAN
     Indication: FACTOR IX DEFICIENCY
     Dosage: 1000 IU, TOT
     Route: 042
     Dates: start: 20170104
  7. IDELVION [Suspect]
     Active Substance: COAGULATION FACTOR IX RECOMBINANT HUMAN
     Dosage: 1750 IU (14.5 IU/KG), QW
     Route: 042
     Dates: start: 20170111
  8. IDELVION [Suspect]
     Active Substance: COAGULATION FACTOR IX RECOMBINANT HUMAN
     Dosage: 2000 IU (16 IU/KG), QW
     Route: 042
     Dates: start: 20170118
  9. IDELVION [Suspect]
     Active Substance: COAGULATION FACTOR IX RECOMBINANT HUMAN
     Dosage: 2000 IU, TOT
     Route: 042
     Dates: start: 20170125
  10. IDELVION [Suspect]
     Active Substance: COAGULATION FACTOR IX RECOMBINANT HUMAN
     Dosage: 250 IU, TOT
     Route: 042
     Dates: start: 20170104

REACTIONS (5)
  - Haemarthrosis [Recovering/Resolving]
  - Synovitis [Not Recovered/Not Resolved]
  - Exostosis [Not Recovered/Not Resolved]
  - Haemarthrosis [Recovered/Resolved]
  - Drug ineffective [Recovering/Resolving]

NARRATIVE: CASE EVENT DATE: 201701
